FAERS Safety Report 7724501-3 (Version None)
Quarter: 2011Q3

REPORT INFORMATION
  Report Type: 
  Country: None (occurrence: None)
  Receive Date: 20110901
  Receipt Date: 20110317
  Transmission Date: 20111222
  Serious: Yes (Other)
  Sender: FDA-Public Use
  Company Number: GB-GLAXOSMITHKLINE-B0707121A

PATIENT
  Sex: Female
  Weight: 74 kg

DRUGS (1)
  1. LAMICTAL [Suspect]
     Indication: BIPOLAR DISORDER
     Dosage: 25MG AT NIGHT
     Route: 048
     Dates: start: 20100701

REACTIONS (3)
  - LIVE BIRTH [None]
  - MATERNAL EXPOSURE DURING PREGNANCY [None]
  - GESTATIONAL HYPERTENSION [None]
